FAERS Safety Report 4289950-7 (Version None)
Quarter: 2004Q1

REPORT INFORMATION
  Report Type: 
  Country: None (occurrence: None)
  Receive Date: 20040209
  Receipt Date: 20040129
  Transmission Date: 20041129
  Serious: Yes (Other)
  Sender: FDA-Public Use
  Company Number: PHNR2004AU00563

PATIENT
  Age: 86 Year
  Sex: Female

DRUGS (10)
  1. VOLTAREN [Suspect]
     Dosage: 100 MG, QD
  2. ALPHAGAN [Concomitant]
  3. SLOW-K [Concomitant]
  4. CELEBREX [Concomitant]
  5. PERINDOPRIL [Concomitant]
  6. CITALOPRAM [Concomitant]
  7. ALLOPURINOL [Concomitant]
  8. RANITIDINE [Concomitant]
  9. SIMVASTATIN [Concomitant]
  10. METOPROLOL [Concomitant]

REACTIONS (6)
  - DYSPNOEA [None]
  - FACE OEDEMA [None]
  - PALPITATIONS [None]
  - PARAESTHESIA CIRCUMORAL [None]
  - SWOLLEN TONGUE [None]
  - URTICARIA [None]
